FAERS Safety Report 10974715 (Version 1)
Quarter: 2015Q1

REPORT INFORMATION
  Report Type: Spontaneous
  Country: US (occurrence: None)
  Receive Date: 20150331
  Receipt Date: 20150331
  Transmission Date: 20150721
  Serious: No
  Sender: FDA-Public Use
  Company Number: None

PATIENT
  Sex: Female

DRUGS (1)
  1. VIEKIRA PAK [Suspect]
     Active Substance: DASABUVIR\OMBITASVIR\PARITAPREVIR\RITONAVIR
     Indication: HEPATITIS C
     Dosage: 2 TABS QAM AND 1 TAB BID
     Route: 048
     Dates: start: 20150207

REACTIONS (5)
  - Blood pressure systolic increased [None]
  - Pain in extremity [None]
  - Gout [None]
  - Vision blurred [None]
  - Photophobia [None]
